FAERS Safety Report 5064243-9 (Version None)
Quarter: 2006Q3

REPORT INFORMATION
  Report Type: 
  Country: None (occurrence: None)
  Receive Date: 20060707
  Receipt Date: 20060505
  Transmission Date: 20061208
  Serious: Yes (Other)
  Sender: FDA-Public Use
  Company Number: SUSI-2006-00343

PATIENT
  Age: 34 Year
  Sex: Female

DRUGS (2)
  1. EQUETRO [Suspect]
     Dosage: 100 MG,2X/DAY:BID
     Dates: start: 20060210, end: 20060311
  2. LAMICTAL [Concomitant]

REACTIONS (2)
  - NEUTROPHIL COUNT DECREASED [None]
  - WHITE BLOOD CELL COUNT DECREASED [None]
